FAERS Safety Report 4356786-8 (Version None)
Quarter: 2004Q2

REPORT INFORMATION
  Report Type: 
  Country: None (occurrence: None)
  Receive Date: 20040507
  Receipt Date: 20040423
  Transmission Date: 20050107
  Serious: Yes (Hospitalization)
  Sender: FDA-Public Use
  Company Number: 2004210456FR

PATIENT
  Age: 70 Year
  Sex: Female

DRUGS (4)
  1. CAMPTOSAR [Suspect]
     Indication: COLON CANCER METASTATIC
     Dosage: 360 MG, CYCLIC, IV
     Route: 042
     Dates: start: 20040316
  2. UFT [Suspect]
     Indication: COLON CANCER METASTATIC
     Dosage: 400 MG, CYCLIC, IV
     Route: 042
     Dates: start: 20040316, end: 20040324
  3. LEUCOVORIN CALCIUM [Suspect]
     Indication: COLON CANCER METASTATIC
     Dosage: 90 MG, CYCLIC, IV
     Route: 042
     Dates: start: 20040316, end: 20040324
  4. MORPHINE SULFATE [Concomitant]

REACTIONS (9)
  - ABDOMINAL PAIN UPPER [None]
  - ALANINE AMINOTRANSFERASE INCREASED [None]
  - DEHYDRATION [None]
  - DIARRHOEA [None]
  - ELECTROLYTE IMBALANCE [None]
  - GAMMA-GLUTAMYLTRANSFERASE INCREASED [None]
  - HYPONATRAEMIA [None]
  - VOMITING [None]
  - WEIGHT DECREASED [None]
